FAERS Safety Report 15153763 (Version 1)
Quarter: 2018Q3

REPORT INFORMATION
  Report Type: Spontaneous
  Country: CN (occurrence: CN)
  Receive Date: 20180717
  Receipt Date: 20180717
  Transmission Date: 20181010
  Serious: Yes (Death, Other)
  Sender: FDA-Public Use
  Company Number: PHHY2018CN039048

PATIENT
  Age: 44 Year
  Sex: Female

DRUGS (18)
  1. PACLITAXEL. [Suspect]
     Active Substance: PACLITAXEL
     Indication: METASTASES TO LUNG
     Route: 065
  2. VINORELBINE [Suspect]
     Active Substance: VINORELBINE\VINORELBINE TARTRATE
     Indication: METASTASES TO LYMPH NODES
  3. EPIRUBICIN [Suspect]
     Active Substance: EPIRUBICIN
     Indication: METASTASES TO LYMPH NODES
  4. TOREMIFENE [Suspect]
     Active Substance: TOREMIFENE
     Indication: MALIGNANT NEOPLASM PROGRESSION
  5. GEMCITABINE [Suspect]
     Active Substance: GEMCITABINE\GEMCITABINE HYDROCHLORIDE
     Indication: METASTASES TO LYMPH NODES
  6. EXEMESTANE. [Suspect]
     Active Substance: EXEMESTANE
     Indication: LUNG CANCER METASTATIC
     Route: 065
  7. CAPECITABINE. [Suspect]
     Active Substance: CAPECITABINE
     Indication: METASTASES TO LUNG
     Route: 065
  8. VINORELBINE [Suspect]
     Active Substance: VINORELBINE\VINORELBINE TARTRATE
     Indication: METASTASES TO LUNG
     Route: 065
  9. GEMCITABINE [Suspect]
     Active Substance: GEMCITABINE\GEMCITABINE HYDROCHLORIDE
     Indication: METASTASES TO LUNG
     Route: 065
  10. PEMETREXED. [Suspect]
     Active Substance: PEMETREXED
     Indication: METASTASES TO LUNG
     Route: 065
  11. PEMETREXED. [Suspect]
     Active Substance: PEMETREXED
     Indication: METASTASES TO LYMPH NODES
  12. CISPLATIN. [Suspect]
     Active Substance: CISPLATIN
     Indication: METASTASES TO LUNG
     Route: 065
  13. CISPLATIN. [Suspect]
     Active Substance: CISPLATIN
     Indication: METASTASES TO LYMPH NODES
  14. PACLITAXEL. [Suspect]
     Active Substance: PACLITAXEL
     Indication: METASTASES TO LYMPH NODES
  15. EPIRUBICIN [Suspect]
     Active Substance: EPIRUBICIN
     Indication: METASTASES TO LUNG
     Route: 065
  16. TOREMIFENE [Suspect]
     Active Substance: TOREMIFENE
     Indication: LUNG CANCER METASTATIC
     Route: 065
  17. CAPECITABINE. [Suspect]
     Active Substance: CAPECITABINE
     Indication: METASTASES TO LYMPH NODES
  18. EXEMESTANE. [Suspect]
     Active Substance: EXEMESTANE
     Indication: MALIGNANT NEOPLASM PROGRESSION

REACTIONS (9)
  - Treatment failure [Unknown]
  - Metastases to lung [Unknown]
  - Haemoptysis [Recovering/Resolving]
  - Metastases to lymph nodes [Unknown]
  - Epilepsy [Fatal]
  - Metastases to bone [Unknown]
  - Metastases to central nervous system [Unknown]
  - Cough [Recovered/Resolved]
  - Renal cancer [Unknown]

NARRATIVE: CASE EVENT DATE: 201403
